FAERS Safety Report 13597790 (Version 1)
Quarter: 2017Q2

REPORT INFORMATION
  Report Type: Spontaneous
  Country: IT (occurrence: IT)
  Receive Date: 20170531
  Receipt Date: 20170531
  Transmission Date: 20170830
  Serious: Yes (Hospitalization, Other)
  Sender: FDA-Public Use
  Company Number: IT-PFIZER INC-2017226648

PATIENT
  Age: 51 Year
  Sex: Male

DRUGS (15)
  1. CISPLATIN. [Concomitant]
     Active Substance: CISPLATIN
     Dosage: UNK, CYCLIC  (THE THIRD TREATMENT CYCLE WAS GIVEN ON TIME, WITH A 25% DOSE REDUCTION)
     Route: 041
  2. DESAMETASONE [Concomitant]
     Active Substance: DEXAMETHASONE
     Indication: PROPHYLAXIS OF NAUSEA AND VOMITING
     Dosage: 8 MG, UNK
     Route: 042
  3. GRANISETRON [Concomitant]
     Active Substance: GRANISETRON
     Dosage: UNK (REPEATED ORALLY ON DAYS 3 AND 4)
     Route: 048
  4. GEMCITABINE HYDROCHLORIDE. [Suspect]
     Active Substance: GEMCITABINE HYDROCHLORIDE
     Indication: NON-SMALL CELL LUNG CANCER
     Dosage: 1250 MG/M2, CYCLIC (ADMINISTERED AS A 30-MIN INFUSION ON DAY 1 AND 8, REPEATED EVERY THREE WEEKS)
     Route: 041
  5. GEMCITABINE HYDROCHLORIDE. [Suspect]
     Active Substance: GEMCITABINE HYDROCHLORIDE
     Dosage: UNK  (THE THIRD TREATMENT CYCLE WAS GIVEN ON TIME, WITH A 25% DOSE REDUCTION)
     Route: 041
  6. GRANISETRON [Concomitant]
     Active Substance: GRANISETRON
     Indication: PROPHYLAXIS OF NAUSEA AND VOMITING
     Dosage: 3 MG, UNK
     Route: 042
  7. DEXAMETHASONE. [Concomitant]
     Active Substance: DEXAMETHASONE
     Dosage: UNK (REPEATED ORALLY ON DAYS 3 AND 4)
     Route: 048
  8. SALINE /00075401/ [Concomitant]
     Active Substance: SODIUM CHLORIDE
     Indication: DEHYDRATION
     Dosage: 3000 ML, DAILY (3000 CC/DAY)
  9. DEXAMETHASONE. [Concomitant]
     Active Substance: DEXAMETHASONE
     Dosage: UNK (REPEATED INTRAVENOUSLY ON DAY 2)
     Route: 042
  10. CISPLATIN. [Concomitant]
     Active Substance: CISPLATIN
     Indication: NON-SMALL CELL LUNG CANCER STAGE IIIA
     Dosage: 80 MG/M2, CYCLIC (ADMINISTERED AS A ONE-HOUR INFUSION ON DAY 1)
     Route: 041
  11. DESAMETASONE [Concomitant]
     Active Substance: DEXAMETHASONE
     Dosage: UNK (REPEATED INTRAVENOUSLY ON DAY 2)
     Route: 042
  12. GRANISETRON [Concomitant]
     Active Substance: GRANISETRON
     Dosage: UNK (REPEATED INTRAVENOUSLY ON DAY 2)
     Route: 042
  13. GEMCITABINE HYDROCHLORIDE. [Suspect]
     Active Substance: GEMCITABINE HYDROCHLORIDE
     Dosage: UNK, CYCLIC (SECOND CYCLE)
     Route: 041
  14. DEXAMETHASONE. [Concomitant]
     Active Substance: DEXAMETHASONE
     Indication: ANTIEMETIC SUPPORTIVE CARE
     Dosage: 4 MG, (GIVEN 12 HOURS AFTER CDDP ADMINISTRATION)
     Route: 042
  15. DESAMETASONE [Concomitant]
     Active Substance: DEXAMETHASONE
     Dosage: UNK (REPEATED ORALLY ON DAYS 3 AND 4)
     Route: 048

REACTIONS (5)
  - Dyspnoea [Recovered/Resolved]
  - Capillary leak syndrome [Recovered/Resolved]
  - Hypotension [Recovered/Resolved]
  - Swelling [Recovered/Resolved]
  - Weight increased [Recovered/Resolved]
